FAERS Safety Report 25142396 (Version 1)
Quarter: 2025Q1

REPORT INFORMATION
  Report Type: Spontaneous
  Country: US (occurrence: US)
  Receive Date: 20250331
  Receipt Date: 20250331
  Transmission Date: 20250409
  Serious: No
  Sender: EVOLUS, INC.
  Company Number: US-Evolus, Inc.-2024EV000487

PATIENT
  Age: 4 Decade
  Sex: Female

DRUGS (2)
  1. JEUVEAU [Suspect]
     Active Substance: PRABOTULINUMTOXINA-XVFS
     Indication: Skin wrinkling
     Dates: start: 20241001, end: 20241001
  2. JEUVEAU [Suspect]
     Active Substance: PRABOTULINUMTOXINA-XVFS
     Indication: Product use in unapproved indication
     Dates: start: 20241025, end: 20241025

REACTIONS (9)
  - Brain fog [Unknown]
  - Anxiety [Unknown]
  - Off label use [Unknown]
  - Periorbital swelling [Unknown]
  - Depression [Unknown]
  - Deformity [Unknown]
  - Reduced facial expression [Unknown]
  - Hypokinesia [Unknown]
  - Product quality issue [Unknown]

NARRATIVE: CASE EVENT DATE: 20241001
